FAERS Safety Report 11596110 (Version 3)
Quarter: 2016Q2

REPORT INFORMATION
  Report Type: Spontaneous
  Country: US (occurrence: US)
  Receive Date: 20151006
  Receipt Date: 20160414
  Transmission Date: 20160815
  Serious: Yes (Other)
  Sender: FDA-Public Use
  Company Number: US-ASTELLAS-2015US036296

PATIENT
  Age: 64 Year
  Sex: Female

DRUGS (1)
  1. VESICARE [Suspect]
     Active Substance: SOLIFENACIN SUCCINATE
     Indication: HYPERTONIC BLADDER
     Dosage: 10 MG, ONCE DAILY BY MOUTH
     Route: 048
     Dates: start: 2010

REACTIONS (5)
  - Headache [Not Recovered/Not Resolved]
  - Road traffic accident [Unknown]
  - Osteopenia [Unknown]
  - Neck surgery [Unknown]
  - Spinal column stenosis [Unknown]

NARRATIVE: CASE EVENT DATE: 2015
